FAERS Safety Report 4518855-9 (Version None)
Quarter: 2004Q4

REPORT INFORMATION
  Report Type: 
  Country: None (occurrence: None)
  Receive Date: 20041201
  Receipt Date: 20041122
  Transmission Date: 20050328
  Serious: Yes (Other)
  Sender: FDA-Public Use
  Company Number: 200415653BCC

PATIENT
  Age: 52 Year
  Sex: Female
  Weight: 68.0396 kg

DRUGS (2)
  1. ALEVE [Suspect]
     Indication: BACK PAIN
     Dosage: 220 MG, QD, ORAL
     Route: 048
     Dates: start: 20041119, end: 20041120
  2. ALEVE [Suspect]
     Indication: SINUS DISORDER
     Dosage: 220/120 MG, QD, ORAL
     Route: 048
     Dates: start: 20041117, end: 20041118

REACTIONS (1)
  - BLOOD PRESSURE INCREASED [None]
